FAERS Safety Report 10067696 (Version 2)
Quarter: 2014Q2

REPORT INFORMATION
  Report Type: Spontaneous
  Country: US (occurrence: None)
  Receive Date: 20140407
  Receipt Date: 20140414
  Transmission Date: 20141212
  Serious: Yes (Hospitalization)
  Sender: FDA-Public Use
  Company Number: UTC-046628

PATIENT
  Age: 71 Year
  Sex: Female
  Weight: 78.47 kg

DRUGS (2)
  1. TYVASO [Suspect]
     Indication: COR PULMONALE CHRONIC
     Dosage: 18-54 MICROGRAMS
     Dates: start: 20140102
  2. SILDENAFIL (SILDENAFIL) [Concomitant]

REACTIONS (2)
  - Haemorrhage [None]
  - Platelet aggregation [None]
